FAERS Safety Report 5834760-X (Version None)
Quarter: 2008Q3

REPORT INFORMATION
  Report Type: 
  Country: None (occurrence: None)
  Receive Date: 20080801
  Receipt Date: 20080729
  Transmission Date: 20090109
  Serious: Yes (Death, Hospitalization)
  Sender: FDA-Public Use
  Company Number: GXKR2008HU07019

PATIENT
  Age: 65 Year
  Sex: Female

DRUGS (3)
  1. FAMOTIDINE [Suspect]
     Dosage: 40 MG, QD
  2. PANITUMUMAB (PANITUMUMAB) [Suspect]
     Indication: COLORECTAL CANCER
     Dosage: 432 MG, INTRAVENOUS
     Route: 042
     Dates: start: 20070301, end: 20070301
  3. CHEMOTHERAPEUTICS NOS (NO INGREDIENTS/SUBSTANCES) [Concomitant]

REACTIONS (2)
  - DEEP VEIN THROMBOSIS [None]
  - NEOPLASM PROGRESSION [None]
